FAERS Safety Report 25677808 (Version 1)
Quarter: 2025Q3

REPORT INFORMATION
  Report Type: Spontaneous
  Country: US (occurrence: US)
  Receive Date: 20250813
  Receipt Date: 20250813
  Transmission Date: 20251020
  Serious: No
  Sender: INCYTE
  Company Number: US-EVENT-003848

PATIENT

DRUGS (1)
  1. OPZELURA [Suspect]
     Active Substance: RUXOLITINIB PHOSPHATE
     Indication: Vitiligo
     Dosage: UNK, ABOUT TWICE A WEEK (WHENEVER SHE CAN)
     Route: 065

REACTIONS (4)
  - Illness [Unknown]
  - Expired product administered [Unknown]
  - Product packaging issue [Unknown]
  - Off label use [Not Recovered/Not Resolved]
